FAERS Safety Report 5400813-3 (Version None)
Quarter: 2007Q3

REPORT INFORMATION
  Report Type: 
  Country: None (occurrence: None)
  Receive Date: 20070730
  Receipt Date: 20070718
  Transmission Date: 20080115
  Serious: Yes (Hospitalization)
  Sender: FDA-Public Use
  Company Number: DE-SHR-DE-2007-027055

PATIENT
  Age: 29 Year
  Sex: Female

DRUGS (2)
  1. BETASERON [Suspect]
     Dosage: 250 A?G, EVERY 2D
     Route: 058
     Dates: start: 20070702
  2. MICROGYNON [Suspect]
     Indication: ORAL CONTRACEPTION
     Dosage: 1 TAB(S), UNK
     Route: 048
     Dates: start: 19930101

REACTIONS (1)
  - VISUAL DISTURBANCE [None]
